FAERS Safety Report 6353969-2 (Version None)
Quarter: 2009Q3

REPORT INFORMATION
  Report Type: 
  Country: None (occurrence: None)
  Receive Date: 20090913
  Receipt Date: 20090902
  Transmission Date: 20100115
  Serious: Yes (Hospitalization)
  Sender: FDA-Public Use
  Company Number: NZ-BAXTER-2009BH013584

PATIENT

DRUGS (6)
  1. STERILE WATER FOR INJECTION IN PLASTIC CONTAINER [Suspect]
     Indication: TRABECULECTOMY
     Route: 031
     Dates: start: 20090101, end: 20090101
  2. STERILE WATER FOR INJECTION IN PLASTIC CONTAINER [Suspect]
     Route: 031
     Dates: start: 20090101, end: 20090101
  3. STERILE WATER FOR INJECTION IN PLASTIC CONTAINER [Suspect]
     Route: 031
     Dates: start: 20090101, end: 20090101
  4. STERILE WATER FOR INJECTION IN PLASTIC CONTAINER [Suspect]
     Route: 031
     Dates: start: 20090101, end: 20090101
  5. MITOMYCIN [Suspect]
     Indication: TRABECULECTOMY
     Route: 031
     Dates: start: 20090101, end: 20090101
  6. MITOMYCIN [Suspect]
     Route: 031
     Dates: start: 20090101, end: 20090101

REACTIONS (1)
  - IMPAIRED HEALING [None]
